FAERS Safety Report 16164259 (Version 5)
Quarter: 2019Q4

REPORT INFORMATION
  Report Type: Spontaneous
  Country: JP (occurrence: JP)
  Receive Date: 20190405
  Receipt Date: 20191119
  Transmission Date: 20200122
  Serious: Yes (Death, Hospitalization, Other)
  Sender: FDA-Public Use
  Company Number: JP-GILEAD-2019-0400041

PATIENT
  Age: 54 Year
  Sex: Male

DRUGS (9)
  1. GLOBULIN [Concomitant]
  2. ZOSYN [Concomitant]
     Active Substance: PIPERACILLIN SODIUM\TAZOBACTAM SODIUM
  3. RIFXIMA [Concomitant]
     Active Substance: RIFAXIMIN
  4. EPCLUSA [Suspect]
     Active Substance: SOFOSBUVIR\VELPATASVIR
     Indication: HEPATIC CIRRHOSIS
     Dosage: 1 DOSAGE FORM
     Route: 048
     Dates: start: 20190325, end: 20190617
  5. LIVACT [AMINO ACIDS NOS] [Concomitant]
  6. LACTULOSE. [Concomitant]
     Active Substance: LACTULOSE
  7. URSO [Concomitant]
     Active Substance: URSODIOL
  8. LANSOPRAZOLE. [Concomitant]
     Active Substance: LANSOPRAZOLE
  9. EPCLUSA [Suspect]
     Active Substance: SOFOSBUVIR\VELPATASVIR
     Indication: HEPATITIS C

REACTIONS (4)
  - Hepatic failure [Fatal]
  - Jaundice [Not Recovered/Not Resolved]
  - Peritonitis bacterial [Not Recovered/Not Resolved]
  - Renal impairment [Not Recovered/Not Resolved]

NARRATIVE: CASE EVENT DATE: 20190401
